FAERS Safety Report 5335305-3 (Version None)
Quarter: 2007Q2

REPORT INFORMATION
  Report Type: 
  Country: None (occurrence: None)
  Receive Date: 20070525
  Receipt Date: 20070514
  Transmission Date: 20071010
  Serious: Yes (Congenital Anomaly, Other)
  Sender: FDA-Public Use
  Company Number: JP-PFIZER INC-2007035864

PATIENT
  Sex: Female
  Weight: 2.9 kg

DRUGS (4)
  1. ZITHROMAC [Suspect]
     Route: 064
     Dates: start: 20061016, end: 20061016
  2. LAXOBERON [Concomitant]
     Route: 064
  3. HERBAL PREPARATION [Concomitant]
     Route: 064
     Dates: start: 20060915, end: 20060918
  4. UTEMERIN [Concomitant]
     Route: 064
     Dates: start: 20070214, end: 20070314

REACTIONS (3)
  - DRUG EXPOSURE DURING PREGNANCY [None]
  - PULMONARY ARTERY ATRESIA [None]
  - VENTRICULAR SEPTAL DEFECT [None]
